FAERS Safety Report 14949796 (Version 2)
Quarter: 2018Q2

REPORT INFORMATION
  Report Type: Spontaneous
  Country: GR (occurrence: GR)
  Receive Date: 20180530
  Receipt Date: 20180530
  Transmission Date: 20180711
  Serious: Yes (Life-Threatening)
  Sender: FDA-Public Use
  Company Number: GR-B. BRAUN MEDICAL INC.-2048636

PATIENT
  Age: 5 Day
  Sex: Male
  Weight: 1.55 kg

DRUGS (16)
  1. STERILE WATER [Suspect]
     Active Substance: WATER
     Route: 042
     Dates: start: 20180408, end: 20180410
  2. INTRALIPID [Suspect]
     Active Substance: EGG PHOSPHOLIPIDS\GLYCERIN\SOYBEAN OIL
     Route: 042
     Dates: start: 20180408, end: 20180410
  3. MAGNESIUM SULFATE 25% [Suspect]
     Active Substance: MAGNESIUM SULFATE
     Route: 042
     Dates: start: 20180408, end: 20180410
  4. GLYCOPHOS [Suspect]
     Active Substance: SODIUM GLYCEROPHOSPHATE ANHYDROUS
     Route: 042
     Dates: start: 20180408, end: 20180410
  5. YDOR INJECTABLE [Suspect]
     Active Substance: UNSPECIFIED INGREDIENT
     Route: 042
     Dates: start: 20180408, end: 20180410
  6. GARAMYCIN [Concomitant]
     Active Substance: GENTAMICIN SULFATE
     Route: 042
     Dates: start: 20180404, end: 20180409
  7. CALCIUM GLUCONATE. [Suspect]
     Active Substance: CALCIUM GLUCONATE
     Route: 042
     Dates: start: 20180408, end: 20180410
  8. VAMIN INFANT [Suspect]
     Active Substance: AMINO ACIDS
     Route: 042
     Dates: start: 20180408, end: 20180410
  9. VITALIPID/ INFANTS INJ EM. INF. [Suspect]
     Active Substance: ERGOCALCIFEROL\PHYTONADIONE\TOCOPHEROL\VITAMIN A PALMITATE
     Route: 042
     Dates: start: 20180408, end: 20180410
  10. CLAFORAN [Concomitant]
     Active Substance: CEFOTAXIME SODIUM
     Route: 042
     Dates: start: 20180404, end: 20180409
  11. DEXTROSE. [Suspect]
     Active Substance: DEXTROSE
     Route: 042
     Dates: start: 20180408, end: 20180410
  12. SOLUVIT N [Suspect]
     Active Substance: VITAMINS
     Route: 042
     Dates: start: 20180408, end: 20180410
  13. AMPICILLIN SOLUTION FOR INJECTION/INFUSION [Concomitant]
     Route: 042
     Dates: start: 20180404, end: 20180509
  14. SODIUM CHLORIDE 15% [Suspect]
     Active Substance: SODIUM CHLORIDE
     Route: 042
     Dates: start: 20180408, end: 20180410
  15. POTASSIUM CHLORIDE 10% [Suspect]
     Active Substance: POTASSIUM CHLORIDE
     Dates: start: 20180408, end: 20180410
  16. PEDITRACE [Suspect]
     Active Substance: CUPRIC CHLORIDE\MANGANESE CHLORIDE\POTASSIUM IODIDE\SODIUM FLUORIDE\SODIUM SELENITE\ZINC CHLORIDE
     Route: 042
     Dates: start: 20180408, end: 20180410

REACTIONS (2)
  - Bacteraemia [Recovered/Resolved]
  - Product preparation error [Recovered/Resolved]

NARRATIVE: CASE EVENT DATE: 20180409
